FAERS Safety Report 10677507 (Version 1)
Quarter: 2014Q4

REPORT INFORMATION
  Report Type: Spontaneous
  Country: GB (occurrence: GB)
  Receive Date: 20141228
  Receipt Date: 20141228
  Transmission Date: 20150529
  Serious: Yes (Disabling, Other)
  Sender: FDA-Public Use
  Company Number: GB-TEVA-525669ISR

PATIENT
  Age: 78 Year
  Sex: Female

DRUGS (4)
  1. TETRACYCLINE [Suspect]
     Active Substance: TETRACYCLINE
     Indication: BRONCHIECTASIS
     Route: 048
     Dates: start: 20141105, end: 20141105
  2. DOXYCYCLINE. [Suspect]
     Active Substance: DOXYCYCLINE
     Indication: BRONCHIECTASIS
     Dosage: 100 MILLIGRAM DAILY;
     Route: 048
     Dates: start: 20141104, end: 20141104
  3. DOXYCYCLINE. [Suspect]
     Active Substance: DOXYCYCLINE
     Indication: BRONCHIECTASIS
     Dosage: 200 MILLIGRAM DAILY;
     Route: 048
     Dates: start: 20141103, end: 20141103
  4. INFLUENZA VIRUS [Concomitant]
     Active Substance: INFLUENZA VIRUS VACCINE
     Indication: INFLUENZA IMMUNISATION
     Dates: start: 201409, end: 201409

REACTIONS (1)
  - Diplopia [Not Recovered/Not Resolved]
